FAERS Safety Report 10014824 (Version 1)
Quarter: 2014Q1

REPORT INFORMATION
  Report Type: Spontaneous
  Country: FR (occurrence: FR)
  Receive Date: 20140317
  Receipt Date: 20140317
  Transmission Date: 20141002
  Serious: Yes (Death, Hospitalization, Other)
  Sender: FDA-Public Use
  Company Number: FR-ELI_LILLY_AND_COMPANY-FR201403002627

PATIENT
  Age: 71 Year
  Sex: Male

DRUGS (7)
  1. ALIMTA [Suspect]
     Indication: BRONCHIAL CARCINOMA
     Dosage: UNK, UNKNOWN
     Route: 042
     Dates: start: 20130214
  2. ALIMTA [Suspect]
     Dosage: 1000 MG, CYCLICAL
     Route: 042
     Dates: start: 20130617
  3. ALIMTA [Suspect]
     Dosage: 975 MG, CYCLICAL
     Route: 042
     Dates: start: 20130708
  4. ALIMTA [Suspect]
     Dosage: 975 MG, CYCLICAL
     Route: 042
     Dates: start: 20130729, end: 20130729
  5. CISPLATINE [Concomitant]
     Indication: BRONCHIAL CARCINOMA
     Dosage: 149 MG, UNKNOWN
     Route: 042
     Dates: start: 20130214
  6. VINORELBINE [Concomitant]
     Dosage: UNK, UNKNOWN
     Route: 065
     Dates: start: 20130307
  7. CARBOPLATINE [Concomitant]
     Dosage: UNK
     Dates: start: 20130328

REACTIONS (9)
  - Pulmonary fibrosis [Fatal]
  - Pyrexia [Unknown]
  - Haemophilus infection [Unknown]
  - Deep vein thrombosis [Unknown]
  - Pulmonary embolism [Unknown]
  - Metastases to bone [Unknown]
  - Metastases to liver [Unknown]
  - Pneumocystis test positive [Unknown]
  - Simplex virus test positive [Unknown]
